FAERS Safety Report 8319329-X (Version None)
Quarter: 2012Q2

REPORT INFORMATION
  Report Type: 
  Country: None (occurrence: None)
  Receive Date: 20120426
  Receipt Date: 20120426
  Transmission Date: 20120825
  Serious: No
  Sender: FDA-Public Use
  Company Number: None

PATIENT
  Age: 58 Year
  Sex: Male
  Weight: 73 kg

DRUGS (2)
  1. ASENAPINE [Suspect]
     Indication: SCHIZOPHRENIA, PARANOID TYPE
     Dosage: 5 MG ONCE SUBLINGUAL
     Route: 060
     Dates: start: 20120131, end: 20120131
  2. ASENAPINE [Suspect]
     Indication: SCHIZOAFFECTIVE DISORDER
     Dosage: 5 MG ONCE SUBLINGUAL
     Route: 060
     Dates: start: 20120131, end: 20120131

REACTIONS (1)
  - AKATHISIA [None]
